FAERS Safety Report 9016185 (Version 1)
Quarter: 2013Q1

REPORT INFORMATION
  Report Type: Spontaneous
  Country: US (occurrence: US)
  Receive Date: 20130116
  Receipt Date: 20130116
  Transmission Date: 20140127
  Serious: Yes (Hospitalization, Disabling, Other)
  Sender: FDA-Public Use
  Company Number: US-009507513-1301USA007528

PATIENT
  Sex: 0

DRUGS (1)
  1. NUVARING [Suspect]
     Dosage: UNK
     Dates: start: 2009, end: 201012

REACTIONS (3)
  - Pulmonary embolism [Unknown]
  - Deep vein thrombosis [Unknown]
  - Thrombophlebitis superficial [Unknown]
